FAERS Safety Report 5019558-7 (Version None)
Quarter: 2006Q2

REPORT INFORMATION
  Report Type: 
  Country: None (occurrence: None)
  Receive Date: 20060601
  Receipt Date: 20060526
  Transmission Date: 20061013
  Serious: No
  Sender: FDA-Public Use
  Company Number: TAP2006Q00948

PATIENT
  Age: 78 Year
  Sex: Female
  Weight: 60 kg

DRUGS (2)
  1. PREVACID NAPRAPAC 375 (LANSOPRAZOLE, NAPROXEN) [Suspect]
     Indication: GASTRIC ULCER
     Dosage: 1 CARD, 1 IN 1 WK, ORAL
     Route: 048
     Dates: start: 20060524, end: 20060525
  2. PREVACID NAPRAPAC 375 (LANSOPRAZOLE, NAPROXEN) [Suspect]
     Indication: PROPHYLAXIS
     Dosage: 1 CARD, 1 IN 1 WK, ORAL
     Route: 048
     Dates: start: 20060524, end: 20060525

REACTIONS (1)
  - VISION BLURRED [None]
